FAERS Safety Report 6241618-3 (Version None)
Quarter: 2009Q2

REPORT INFORMATION
  Report Type: 
  Country: None (occurrence: None)
  Receive Date: 20090623
  Receipt Date: 20050530
  Transmission Date: 20091009
  Serious: Yes (Hospitalization)
  Sender: FDA-Public Use
  Company Number: ES-ROCHE-388844

PATIENT
  Sex: Male
  Weight: 54 kg

DRUGS (19)
  1. DACLIZUMAB [Suspect]
     Route: 042
     Dates: start: 20041108
  2. DACLIZUMAB [Suspect]
     Route: 042
     Dates: start: 20041122
  3. MYCOPHENOLATE MOFETIL [Suspect]
     Dosage: DRUG REPORTED: MICOPHENOLATE MOFETIL
     Route: 048
     Dates: start: 20041108
  4. MYCOPHENOLATE MOFETIL [Suspect]
     Route: 048
     Dates: start: 20041109
  5. MYCOPHENOLATE MOFETIL [Suspect]
     Route: 048
     Dates: start: 20041110
  6. CYCLOSPORINE [Suspect]
     Dosage: DRUG REPORTED: CYCLSOPORINE
     Route: 048
     Dates: start: 20021115
  7. CYCLOSPORINE [Suspect]
     Route: 048
     Dates: start: 20041109
  8. CYCLOSPORINE [Suspect]
     Route: 048
     Dates: start: 20050114
  9. CYCLOSPORINE [Suspect]
     Route: 048
     Dates: start: 20060302
  10. CYCLOSPORINE [Suspect]
     Route: 048
     Dates: start: 20070717
  11. CYCLOSPORINE [Suspect]
     Route: 048
     Dates: start: 20070829
  12. CYCLOSPORINE [Suspect]
     Route: 048
     Dates: start: 20071115
  13. CYCLOSPORINE [Suspect]
     Dosage: DRUG REPORTED: CYCLOSPORINE
     Route: 042
     Dates: start: 20041108
  14. PREDNISONE [Suspect]
     Route: 048
     Dates: start: 20041109
  15. RANITIDINA [Concomitant]
     Dosage: 22-24 NOV 2004: 150 MG BID.
     Route: 048
     Dates: start: 20041122
  16. AMLODIPINO [Concomitant]
     Route: 048
     Dates: start: 20041110
  17. CARVEDILOL [Concomitant]
     Route: 048
     Dates: start: 20041114
  18. METILPREDNISOLONE [Suspect]
     Dosage: FORM: VIAL
     Route: 042
     Dates: start: 20041108
  19. METILPREDNISOLONE [Suspect]
     Route: 042
     Dates: start: 20041109

REACTIONS (1)
  - UPPER RESPIRATORY TRACT INFECTION [None]
